FAERS Safety Report 8522794-6 (Version None)
Quarter: 2012Q3

REPORT INFORMATION
  Report Type: 
  Country: None (occurrence: None)
  Receive Date: 20120719
  Receipt Date: 20120705
  Transmission Date: 20120928
  Serious: Yes (Other)
  Sender: FDA-Public Use
  Company Number: CHPA2012US015071

PATIENT
  Sex: Female

DRUGS (1)
  1. PHENYLEPHRINE HCL [Suspect]
     Indication: DYSPNOEA
     Dosage: UNK, UNK
     Route: 045

REACTIONS (2)
  - DRUG DEPENDENCE [None]
  - OFF LABEL USE [None]
